FAERS Safety Report 8293148-5 (Version None)
Quarter: 2012Q2

REPORT INFORMATION
  Report Type: 
  Country: None (occurrence: None)
  Receive Date: 20120417
  Receipt Date: 20111107
  Transmission Date: 20120825
  Serious: No
  Sender: FDA-Public Use
  Company Number: US-ASTRAZENECA-2011SE67576

PATIENT
  Age: 49 Year
  Sex: Male

DRUGS (3)
  1. ANTIBIOTICS [Concomitant]
  2. NEXIUM [Suspect]
     Route: 048
  3. OTC MEDICATIONS [Concomitant]

REACTIONS (1)
  - INFLUENZA [None]
